FAERS Safety Report 6266597-4 (Version None)
Quarter: 2009Q3

REPORT INFORMATION
  Report Type: 
  Country: None (occurrence: None)
  Receive Date: 20090709
  Receipt Date: 20090629
  Transmission Date: 20100115
  Serious: Yes (Hospitalization, Other)
  Sender: FDA-Public Use
  Company Number: 234112K07USA

PATIENT
  Age: 47 Year
  Sex: Female
  Weight: 136 kg

DRUGS (21)
  1. REBIF [Suspect]
     Indication: MULTIPLE SCLEROSIS
     Dosage: 44 MCG, 3 IN 1 WEEKS, SUBCUTANEOUS
     Route: 058
     Dates: start: 20060722
  2. NEURONTIN [Concomitant]
  3. DARVOCET-N 100 [Concomitant]
  4. BACLOFEN [Concomitant]
  5. METHADONE HCL [Concomitant]
  6. COZAAR [Concomitant]
  7. LOVASTATIN [Concomitant]
  8. THYROID TAB [Concomitant]
  9. METFORMIN HCL [Concomitant]
  10. COUMADIN [Concomitant]
  11. SINGULAIR (MONTELUKAST /01362601/) [Concomitant]
  12. MAXALT (RIZATRIPTAN) [Concomitant]
  13. ZANTAC 150 [Concomitant]
  14. PHENERGAN SUPPOSITORIES (PROMETHAZINE) [Concomitant]
  15. FOLIC ACID [Concomitant]
  16. LASIX (FUROSEMIDE /00032601/) [Concomitant]
  17. STOOL SOFTENERS (DOCUSATE SODIUM) [Concomitant]
  18. POTASSIUM CHLORIDE [Concomitant]
  19. ALBUTEROL NEBULIZER (SALBUTAMOL /00139501/) [Concomitant]
  20. METHYLPREDNISOLONE [Concomitant]
  21. PERCOCET [Concomitant]

REACTIONS (7)
  - CONCOMITANT DISEASE PROGRESSION [None]
  - DEEP VEIN THROMBOSIS [None]
  - FALL [None]
  - FRACTURE [None]
  - JOINT INJURY [None]
  - LOWER EXTREMITY MASS [None]
  - ROTATOR CUFF SYNDROME [None]
